FAERS Safety Report 7786554-6 (Version None)
Quarter: 2011Q3

REPORT INFORMATION
  Report Type: 
  Country: None (occurrence: None)
  Receive Date: 20110929
  Receipt Date: 20110928
  Transmission Date: 20111222
  Serious: Yes (Hospitalization)
  Sender: FDA-Public Use
  Company Number: GB-GLAXOSMITHKLINE-B0748572A

PATIENT
  Age: 81 Year
  Sex: Male

DRUGS (13)
  1. CITALOPRAM HYDROBROMIDE [Concomitant]
  2. ACETAMINOPHEN [Concomitant]
  3. PIPERACILLIN AND TAZOBACTAM [Concomitant]
  4. CALCIUM + COLECALCIFEROL [Concomitant]
  5. DALTEPARIN SODIUM [Concomitant]
  6. OMEPRAZOLE [Concomitant]
  7. FINASTERIDE [Concomitant]
  8. MIDODRINE HYDROCHLORIDE [Concomitant]
  9. MOVIPREP [Concomitant]
  10. RASAGILINE MESYLATE [Concomitant]
  11. ALENDRONIC ACID [Concomitant]
  12. ROPINIROLE [Suspect]
     Indication: PARKINSON'S DISEASE
     Dosage: 16MG PER DAY
     Route: 048
     Dates: start: 20070914
  13. STALEVO 100 [Concomitant]

REACTIONS (6)
  - MUSCLE RIGIDITY [None]
  - HYPERTONIA [None]
  - NEUROLEPTIC MALIGNANT SYNDROME [None]
  - HYPERPYREXIA [None]
  - WITHDRAWAL SYNDROME [None]
  - HYPERHIDROSIS [None]
